FAERS Safety Report 4610524-X (Version None)
Quarter: 2005Q1

REPORT INFORMATION
  Report Type: 
  Country: None (occurrence: None)
  Receive Date: 20050316
  Receipt Date: 20050311
  Transmission Date: 20050727
  Serious: Yes (Disabling)
  Sender: FDA-Public Use
  Company Number: US-MERCK-0503USA01836

PATIENT
  Age: 86 Year
  Sex: Female

DRUGS (11)
  1. FOSAMAX [Suspect]
     Indication: OSTEOPOROSIS
     Route: 048
     Dates: start: 19950101
  2. TOPROL-XL [Concomitant]
     Route: 065
  3. ISOSORBIDE [Concomitant]
     Route: 065
  4. PRINIVIL [Concomitant]
     Route: 048
  5. BENICAR [Concomitant]
     Route: 065
  6. PEPCID [Concomitant]
     Route: 048
  7. MOBIC [Concomitant]
     Route: 065
  8. [THERAPY UNSPECIFIED] [Concomitant]
     Route: 065
  9. PLAVIX [Concomitant]
     Route: 065
  10. AMBIEN [Concomitant]
     Route: 065
  11. SYNTHROID [Concomitant]
     Route: 065

REACTIONS (2)
  - ASTHENIA [None]
  - BACK PAIN [None]
